FAERS Safety Report 18954694 (Version 2)
Quarter: 2022Q1

REPORT INFORMATION
  Report Type: Spontaneous
  Country: US (occurrence: US)
  Receive Date: 20210301
  Receipt Date: 20220222
  Transmission Date: 20220424
  Serious: Yes (Other)
  Sender: FDA-Public Use
  Company Number: US-UCBSA-2021009613

PATIENT
  Age: 8 Year
  Sex: Female

DRUGS (7)
  1. LEVETIRACETAM [Suspect]
     Active Substance: LEVETIRACETAM
     Indication: Seizure
     Dosage: 68 MILLIGRAMS PER KILOGRAMS PER DAY
  2. LEVETIRACETAM [Suspect]
     Active Substance: LEVETIRACETAM
     Dosage: 40 MILLIGRAMS PER KILOGRAMS PER DAY
  3. PHENYTOIN [Suspect]
     Active Substance: PHENYTOIN
     Indication: Seizure
     Dosage: 5 MILLIGRAMS PER KILOGRAMS PER DAY
  4. CLOBAZAM [Suspect]
     Active Substance: CLOBAZAM
     Indication: Seizure
     Dosage: 1.5 MILLIGRAMS PER KILOGRAMS PER DAY
  5. CLOBAZAM [Suspect]
     Active Substance: CLOBAZAM
     Dosage: 1 MILLIGRAMS PER KILOGRAMS PER DAY
  6. CANNABIDIOL [Suspect]
     Active Substance: CANNABIDIOL
     Indication: Seizure
     Dosage: UNK
  7. CARBAMAZEPINE [Suspect]
     Active Substance: CARBAMAZEPINE
     Indication: Seizure
     Dosage: UNK

REACTIONS (4)
  - Thrombocytopenia [Unknown]
  - Parainfluenzae virus infection [Unknown]
  - Transaminases increased [Unknown]
  - Multiple-drug resistance [Unknown]
